FAERS Safety Report 8342759-7 (Version None)
Quarter: 2012Q2

REPORT INFORMATION
  Report Type: 
  Country: None (occurrence: None)
  Receive Date: 20120503
  Receipt Date: 20120409
  Transmission Date: 20120825
  Serious: Yes (Death, Hospitalization, Other)
  Sender: FDA-Public Use
  Company Number: BR-023277

PATIENT
  Age: 70 Month
  Weight: 68.2 kg

DRUGS (1)
  1. CHLORAMBUCIL (CHLORAMBUCIL) [Suspect]
     Indication: CHRONIC LYMPHOCYTIC LEUKAEMIA
     Dosage: 10MGM2 CYLIC: DAYS 1-7 EVERY 28 DAYS (10 MG/M2)
     Route: 048
     Dates: start: 20110330

REACTIONS (3)
  - SEPSIS [None]
  - GENERAL PHYSICAL CONDITION ABNORMAL [None]
  - RENAL IMPAIRMENT [None]
